FAERS Safety Report 14709856 (Version 5)
Quarter: 2021Q1

REPORT INFORMATION
  Report Type: Report from Study
  Country: US (occurrence: US)
  Receive Date: 20180403
  Receipt Date: 20210309
  Transmission Date: 20210419
  Serious: Yes (Hospitalization, Other)
  Sender: FDA-Public Use
  Company Number: US-SA-2018SA091160

PATIENT
  Age: 36 Year
  Sex: Male
  Weight: 138 kg

DRUGS (5)
  1. MYRBETRIQ [Concomitant]
     Active Substance: MIRABEGRON
     Indication: NEUROGENIC BLADDER
     Dosage: 50 MG
     Route: 065
     Dates: start: 201801, end: 201803
  2. CITALOPRAM [Concomitant]
     Active Substance: CITALOPRAM HYDROBROMIDE
     Indication: DEPRESSION
     Dosage: 40 MG
     Route: 065
  3. ERGOCALCIFEROL. [Concomitant]
     Active Substance: ERGOCALCIFEROL
     Indication: MULTIPLE SCLEROSIS
     Dosage: 2000 IU
     Route: 065
  4. ALEMTUZUMAB [Suspect]
     Active Substance: ALEMTUZUMAB
     Indication: MULTIPLE SCLEROSIS
     Dosage: 12 MG, QD
     Route: 041
     Dates: start: 20170417, end: 20170421
  5. VESICARE [Concomitant]
     Active Substance: SOLIFENACIN SUCCINATE
     Indication: NEUROGENIC BLADDER
     Dosage: 10 MG
     Route: 065
     Dates: end: 201803

REACTIONS (9)
  - Autoimmune haemolytic anaemia [Unknown]
  - Sepsis [Unknown]
  - Haemoglobin decreased [Not Recovered/Not Resolved]
  - Basedow^s disease [Not Recovered/Not Resolved]
  - Urinary tract infection [Not Recovered/Not Resolved]
  - Evans syndrome [Unknown]
  - Immune thrombocytopenia [Unknown]
  - Escherichia sepsis [Not Recovered/Not Resolved]
  - Autoimmune neutropenia [Unknown]

NARRATIVE: CASE EVENT DATE: 201803
